FAERS Safety Report 7878307-5 (Version None)
Quarter: 2011Q4

REPORT INFORMATION
  Report Type: 
  Country: None (occurrence: None)
  Receive Date: 20111028
  Receipt Date: 20111018
  Transmission Date: 20120403
  Serious: Yes (Hospitalization)
  Sender: FDA-Public Use
  Company Number: 11-658

PATIENT
  Age: 45 Year
  Sex: Female

DRUGS (1)
  1. IBUPROFEN [Suspect]
     Indication: DENTAL CARIES
     Dosage: ABOUT 50DF/QD, ORAL, SEVERAL MONTHS
     Route: 048

REACTIONS (8)
  - MICROCYTIC ANAEMIA [None]
  - HYPOKALAEMIA [None]
  - GASTRIC ULCER [None]
  - RENAL FAILURE ACUTE [None]
  - MYALGIA [None]
  - OESOPHAGEAL STENOSIS [None]
  - OVERDOSE [None]
  - RENAL TUBULAR ACIDOSIS [None]
